FAERS Safety Report 14625015 (Version 1)
Quarter: 2018Q1

REPORT INFORMATION
  Report Type: Spontaneous
  Country: US (occurrence: US)
  Receive Date: 20180309
  Receipt Date: 20180309
  Transmission Date: 20180509
  Serious: Yes (Hospitalization)
  Sender: FDA-Public Use
  Company Number: None

PATIENT
  Age: 57 Year
  Sex: Female
  Weight: 90.1 kg

DRUGS (3)
  1. CISPLATIN. [Suspect]
     Active Substance: CISPLATIN
     Dates: end: 20180216
  2. ETOPOSIDE (VP-16) [Suspect]
     Active Substance: ETOPOSIDE
     Dates: end: 20180216
  3. BLEOMYCIN [Suspect]
     Active Substance: BLEOMYCIN SULFATE
     Dosage: DOSE AMOUNT - 30 UNIT
     Dates: end: 20180212

REACTIONS (7)
  - Abdominal pain [None]
  - Vomiting [None]
  - Nausea [None]
  - Diarrhoea [None]
  - Neutropenia [None]
  - Infection [None]
  - Gastritis [None]

NARRATIVE: CASE EVENT DATE: 20180223
